FAERS Safety Report 20805304 (Version 3)
Quarter: 2022Q2

REPORT INFORMATION
  Report Type: Report from Study
  Country: US (occurrence: US)
  Receive Date: 20220509
  Receipt Date: 20220615
  Transmission Date: 20220721
  Serious: No
  Sender: FDA-Public Use
  Company Number: US-BEH-2022145152

PATIENT
  Age: 53 Year
  Sex: Male

DRUGS (2)
  1. HIZENTRA [Suspect]
     Active Substance: HUMAN IMMUNOGLOBULIN G
     Indication: Chronic inflammatory demyelinating polyradiculoneuropathy
     Dosage: UNK UNK, QW
     Route: 058
     Dates: start: 20220502, end: 20220608
  2. HIZENTRA [Suspect]
     Active Substance: HUMAN IMMUNOGLOBULIN G
     Indication: Primary immunodeficiency syndrome

REACTIONS (10)
  - Administration site erythema [Unknown]
  - Administration site swelling [Unknown]
  - Headache [Unknown]
  - Infusion site mass [Unknown]
  - Infusion site erythema [Unknown]
  - Oral pain [Recovering/Resolving]
  - Arthralgia [Recovering/Resolving]
  - Coating in mouth [Not Recovered/Not Resolved]
  - Pain in extremity [Not Recovered/Not Resolved]
  - Arthralgia [Not Recovered/Not Resolved]

NARRATIVE: CASE EVENT DATE: 20220502
